FAERS Safety Report 6235290-6 (Version None)
Quarter: 2009Q2

REPORT INFORMATION
  Report Type: 
  Country: None (occurrence: None)
  Receive Date: 20090618
  Receipt Date: 20090610
  Transmission Date: 20091009
  Serious: Yes (Other)
  Sender: FDA-Public Use
  Company Number: US-JNJCH-2009016109

PATIENT
  Age: 63 Year
  Sex: Male
  Weight: 141.5 kg

DRUGS (6)
  1. LISTERINE TOOTH DEFENSE [Suspect]
     Indication: DENTAL DISORDER PROPHYLAXIS
     Dosage: TEXT:1/2 A SIP TWO TIMES 14 HOURS APART
     Route: 048
     Dates: start: 20090607, end: 20090608
  2. METOPROLOL SUCCINATE [Concomitant]
     Indication: HYPERTENSION
     Dosage: TEXT:50MG TWICE DAILY
     Route: 048
  3. ZETIA [Concomitant]
     Indication: HYPERCHOLESTEROLAEMIA
     Dosage: TEXT:10MG ONE DAILY
     Route: 048
  4. AMLODIPINE [Concomitant]
     Indication: BLOOD PRESSURE
     Dosage: TEXT:5/10 TEV ONE DAILY
     Route: 048
  5. ISOSORBIDE [Concomitant]
     Indication: CHEST PAIN
     Dosage: TEXT:30MG 1/2 TWICE DAILY
     Route: 048
  6. ASPIRIN [Concomitant]
     Indication: ANTICOAGULANT THERAPY
     Dosage: TEXT:81MG ONE DAILY
     Route: 048

REACTIONS (5)
  - LIP SWELLING [None]
  - ORAL DISCOMFORT [None]
  - SIMILAR REACTION ON PREVIOUS EXPOSURE TO DRUG [None]
  - SWELLING FACE [None]
  - URTICARIA [None]
